FAERS Safety Report 7654205-7 (Version None)
Quarter: 2011Q3

REPORT INFORMATION
  Report Type: 
  Country: None (occurrence: None)
  Receive Date: 20110803
  Receipt Date: 20110729
  Transmission Date: 20111222
  Serious: Yes (Life-Threatening)
  Sender: FDA-Public Use
  Company Number: JP-ABBOTT-11P-087-0840514-00

PATIENT
  Sex: Female

DRUGS (28)
  1. ALLEGRA [Concomitant]
     Indication: HEADACHE
  2. CLINDAMYCIN [Suspect]
     Indication: HEADACHE
  3. LANSOPRAZOLE [Concomitant]
     Indication: PYREXIA
  4. ALLEGRA [Concomitant]
     Indication: PHARYNGITIS
     Route: 048
     Dates: start: 20110701, end: 20110701
  5. CLARITHROMYCIN [Suspect]
     Indication: HEADACHE
  6. CLINDAMYCIN [Suspect]
     Indication: SINUSITIS
  7. CLINDAMYCIN [Suspect]
     Indication: PYREXIA
  8. LANSOPRAZOLE [Concomitant]
     Indication: PHARYNGITIS
     Route: 048
     Dates: start: 20110701, end: 20110701
  9. ALLEGRA [Concomitant]
     Indication: PYREXIA
  10. ISEPACIN [Concomitant]
     Indication: PYREXIA
  11. DEXTROMETHORPHAN HYDROBROMIDE HYDRATE [Concomitant]
     Indication: SINUSITIS
  12. ALLEGRA [Concomitant]
     Indication: SINUSITIS
  13. DEXTROMETHORPHAN HYDROBROMIDE HYDRATE [Concomitant]
     Indication: HEADACHE
  14. CLARITHROMYCIN [Suspect]
     Indication: SINUSITIS
  15. CLINDAMYCIN [Suspect]
     Indication: PHARYNGITIS
     Route: 042
     Dates: start: 20110701, end: 20110701
  16. LANSOPRAZOLE [Concomitant]
     Indication: HEADACHE
  17. MONTELUKAST SODIUM [Concomitant]
     Indication: SINUSITIS
  18. MONTELUKAST SODIUM [Concomitant]
     Indication: HEADACHE
  19. ISEPACIN [Concomitant]
     Indication: PHARYNGITIS
     Route: 042
     Dates: start: 20110701, end: 20110701
  20. ISEPACIN [Concomitant]
     Indication: SINUSITIS
  21. ISEPACIN [Concomitant]
     Indication: HEADACHE
  22. CLARITHROMYCIN [Suspect]
     Indication: PHARYNGITIS
     Route: 048
     Dates: start: 20110701, end: 20110701
  23. LANSOPRAZOLE [Concomitant]
     Indication: SINUSITIS
  24. MONTELUKAST SODIUM [Concomitant]
     Indication: PHARYNGITIS
     Route: 048
     Dates: start: 20110701, end: 20110701
  25. MONTELUKAST SODIUM [Concomitant]
     Indication: PYREXIA
  26. DEXTROMETHORPHAN HYDROBROMIDE HYDRATE [Concomitant]
     Indication: PYREXIA
     Route: 048
     Dates: start: 20110701, end: 20110701
  27. CLARITHROMYCIN [Suspect]
     Indication: PYREXIA
  28. DEXTROMETHORPHAN HYDROBROMIDE HYDRATE [Concomitant]
     Indication: PHARYNGITIS

REACTIONS (5)
  - EAR DISCOMFORT [None]
  - DYSPNOEA [None]
  - PYREXIA [None]
  - GENERALISED ERYTHEMA [None]
  - COUGH [None]
